FAERS Safety Report 6900317-2 (Version None)
Quarter: 2010Q3

REPORT INFORMATION
  Report Type: 
  Country: None (occurrence: None)
  Receive Date: 20100803
  Receipt Date: 20100721
  Transmission Date: 20110219
  Serious: Yes (Other)
  Sender: FDA-Public Use
  Company Number: PHHY2010JP37796

PATIENT
  Sex: Male
  Weight: 73 kg

DRUGS (3)
  1. DIOVAN HCT [Suspect]
     Indication: HYPERTENSION
     Dosage: 1 DF (80/12.5 MG) DAILY
     Route: 048
     Dates: start: 20100519, end: 20100519
  2. NORVASC [Concomitant]
     Indication: HYPERTENSION
     Dosage: 5 MG, UNK
     Route: 048
     Dates: start: 20060601, end: 20100523
  3. ANTEBATE [Concomitant]
     Indication: ECZEMA
     Dosage: UNK
     Route: 062
     Dates: start: 20090801, end: 20100527

REACTIONS (10)
  - BRONCHOALVEOLAR LAVAGE [None]
  - C-REACTIVE PROTEIN INCREASED [None]
  - DRUG ERUPTION [None]
  - ECZEMA [None]
  - EOSINOPHIL PERCENTAGE INCREASED [None]
  - ERYTHEMA [None]
  - LYMPHOCYTE COUNT INCREASED [None]
  - NAUSEA [None]
  - PNEUMONIA [None]
  - PYREXIA [None]
